FAERS Safety Report 6078752-7 (Version None)
Quarter: 2009Q1

REPORT INFORMATION
  Report Type: 
  Country: None (occurrence: None)
  Receive Date: 20090216
  Receipt Date: 20090205
  Transmission Date: 20090719
  Serious: Yes (Hospitalization)
  Sender: FDA-Public Use
  Company Number: CH-ASTRAZENECA-2009PK00539

PATIENT
  Age: 69 Year
  Sex: Female

DRUGS (12)
  1. NEXIUM [Suspect]
     Route: 048
     Dates: start: 20081201
  2. SURMONTIL [Interacting]
     Indication: DEPRESSION
     Route: 048
     Dates: end: 20090107
  3. SURMONTIL [Interacting]
     Route: 048
     Dates: start: 20090103, end: 20090103
  4. EFFEXOR [Interacting]
     Indication: DEPRESSION
     Route: 048
     Dates: start: 20081224, end: 20090107
  5. TRAMADOL HCL [Interacting]
     Indication: PAIN
     Route: 048
     Dates: start: 20081212, end: 20090107
  6. MIDAZOLAM HCL [Concomitant]
     Route: 048
  7. AMARYL [Concomitant]
     Route: 048
  8. METFIN [Concomitant]
     Route: 048
  9. IRBESARTAN [Concomitant]
     Route: 048
  10. ADALAT [Concomitant]
     Route: 048
  11. TOREM [Concomitant]
     Route: 048
  12. ASPIRIN [Concomitant]
     Route: 048

REACTIONS (7)
  - ACCIDENTAL OVERDOSE [None]
  - DRUG INTERACTION [None]
  - HYPERTENSION [None]
  - HYPERTONIA [None]
  - MYOCLONUS [None]
  - SEROTONIN SYNDROME [None]
  - TREMOR [None]
